FAERS Safety Report 14626584 (Version 1)
Quarter: 2018Q1

REPORT INFORMATION
  Report Type: Spontaneous
  Country: US (occurrence: US)
  Receive Date: 20180310
  Receipt Date: 20180310
  Transmission Date: 20180509
  Serious: Yes (Hospitalization)
  Sender: FDA-Public Use
  Company Number: None

PATIENT
  Age: 47 Year
  Sex: Female

DRUGS (12)
  1. BENADRYL [Concomitant]
     Active Substance: DIPHENHYDRAMINE HYDROCHLORIDE
  2. VENTOLIN [Concomitant]
     Active Substance: ALBUTEROL SULFATE
  3. ZYRTEC [Concomitant]
     Active Substance: CETIRIZINE HYDROCHLORIDE
  4. LEXAPRO [Concomitant]
     Active Substance: ESCITALOPRAM OXALATE
  5. TOPAMAX [Concomitant]
     Active Substance: TOPIRAMATE
  6. COSENTYX [Suspect]
     Active Substance: SECUKINUMAB
     Indication: PSORIASIS
     Dosage: 300MG (2 PENS) EVERY 4 WEEKS SUBCUTANEOUS
     Route: 058
     Dates: start: 20171031
  7. HYDROXYZINE FAMOATE [Concomitant]
  8. NEURONTIN [Concomitant]
     Active Substance: GABAPENTIN
  9. TRAZODONE [Concomitant]
     Active Substance: TRAZODONE HYDROCHLORIDE
  10. TIAZAC [Concomitant]
     Active Substance: DILTIAZEM HYDROCHLORIDE
  11. FLONASE [Concomitant]
     Active Substance: FLUTICASONE PROPIONATE
  12. SINGULAIR [Concomitant]
     Active Substance: MONTELUKAST SODIUM

REACTIONS (4)
  - Blood pressure decreased [None]
  - Pyrexia [None]
  - Migraine [None]
  - Drug dose omission [None]

NARRATIVE: CASE EVENT DATE: 201802
